FAERS Safety Report 5250760-5 (Version None)
Quarter: 2007Q1

REPORT INFORMATION
  Report Type: 
  Country: None (occurrence: None)
  Receive Date: 20070228
  Receipt Date: 20070219
  Transmission Date: 20070707
  Serious: Yes (Disabling, Other)
  Sender: FDA-Public Use
  Company Number: PHEH2004US07657

PATIENT
  Age: 51 Year
  Sex: Female
  Weight: 88.435 kg

DRUGS (6)
  1. VIVELLE-DOT [Suspect]
     Indication: HORMONE REPLACEMENT THERAPY
     Dosage: 0.025 MG/DAY, Q3 DAYS
     Route: 062
     Dates: start: 19990629, end: 20010503
  2. PREMARIN [Suspect]
     Indication: HORMONE REPLACEMENT THERAPY
     Dosage: 0.625 MG/DAY, 3 Q 4 WEEKS
     Dates: end: 19830101
  3. ALORA [Suspect]
  4. CLIMARA ^SCHERING^ [Suspect]
     Indication: HORMONE REPLACEMENT THERAPY
     Dosage: 0.1 MG/DAY, UNK
     Route: 062
  5. BELLERGAL-S [Concomitant]
     Indication: SLEEP DISORDER
  6. VIVELLE [Suspect]
     Indication: HORMONE REPLACEMENT THERAPY

REACTIONS (22)
  - ABSCESS [None]
  - ANXIETY [None]
  - BREAST ABSCESS [None]
  - BREAST CANCER IN SITU [None]
  - BREAST CYST [None]
  - BREAST MICROCALCIFICATION [None]
  - BREAST TENDERNESS [None]
  - DYSPHONIA [None]
  - DYSPNOEA [None]
  - ELECTROCARDIOGRAM ST-T CHANGE [None]
  - EMOTIONAL DISTRESS [None]
  - FIBROADENOMA OF BREAST [None]
  - HOT FLUSH [None]
  - INJURY [None]
  - INSOMNIA [None]
  - MALIGNANT BREAST LUMP REMOVAL [None]
  - MAMMARY DUCT ECTASIA [None]
  - MASTITIS [None]
  - PALPITATIONS [None]
  - SCAR [None]
  - VENTRICULAR EXTRASYSTOLES [None]
  - VOCAL CORD THICKENING [None]
